FAERS Safety Report 8538545-5 (Version None)
Quarter: 2012Q3

REPORT INFORMATION
  Report Type: 
  Country: None (occurrence: None)
  Receive Date: 20120718
  Receipt Date: 20120718
  Transmission Date: 20120928
  Serious: Yes (Other)
  Sender: FDA-Public Use
  Company Number: None

PATIENT
  Age: 77 Year
  Sex: Male
  Weight: 77.1115 kg

DRUGS (2)
  1. PRADAXA [Suspect]
     Indication: ANTICOAGULANT THERAPY
     Dosage: 150 MG TWICE A DAY BY MOUTH
     Route: 048
     Dates: start: 20120612, end: 20120621
  2. PRADAXA [Suspect]
     Indication: ATRIAL FIBRILLATION
     Dosage: 150 MG TWICE A DAY BY MOUTH
     Route: 048
     Dates: start: 20120612, end: 20120621

REACTIONS (2)
  - FAECES DISCOLOURED [None]
  - HAEMORRHAGE [None]
